FAERS Safety Report 23606959 (Version 1)
Quarter: 2024Q1

REPORT INFORMATION
  Report Type: Report from Study
  Country: CA (occurrence: CA)
  Receive Date: 20240307
  Receipt Date: 20240307
  Transmission Date: 20240410
  Serious: Yes (Other)
  Sender: FDA-Public Use
  Company Number: CA-BEH-2024169293

PATIENT
  Age: 72 Year
  Sex: Female
  Weight: 59.4 kg

DRUGS (12)
  1. HIZENTRA [Suspect]
     Active Substance: HUMAN IMMUNOGLOBULIN G
     Indication: Primary immunodeficiency syndrome
     Dosage: 5 GRAM, QW
     Route: 058
     Dates: start: 20211105
  2. BENRALIZUMAB [Concomitant]
     Active Substance: BENRALIZUMAB
  3. HUMAN IMMUNOGLOBULIN G [Concomitant]
     Active Substance: HUMAN IMMUNOGLOBULIN G
  4. SPIRIVA [Concomitant]
     Active Substance: TIOTROPIUM BROMIDE MONOHYDRATE
  5. BREVA [Concomitant]
     Active Substance: ALBUTEROL\IPRATROPIUM
  6. ALBUTEROL [Concomitant]
     Active Substance: ALBUTEROL
  7. PANTOPRAZOLE [Concomitant]
     Active Substance: PANTOPRAZOLE
  8. ATORVASTATIN [Concomitant]
     Active Substance: ATORVASTATIN
  9. SYNTHROID [Concomitant]
     Active Substance: LEVOTHYROXINE SODIUM
  10. ALMOTRIPTAN [Concomitant]
     Active Substance: ALMOTRIPTAN
  11. ZOPICLONE [Concomitant]
     Active Substance: ZOPICLONE
  12. PROLEAK [Concomitant]

REACTIONS (3)
  - Small cell lung cancer [Unknown]
  - Back pain [Unknown]
  - Inflammation [Unknown]
